FAERS Safety Report 6958803-5 (Version None)
Quarter: 2010Q3

REPORT INFORMATION
  Report Type: 
  Country: None (occurrence: None)
  Receive Date: 20100831
  Receipt Date: 20100825
  Transmission Date: 20110219
  Serious: Yes (Death)
  Sender: FDA-Public Use
  Company Number: PHFR2010GB01988

PATIENT
  Sex: Male
  Weight: 82.55 kg

DRUGS (5)
  1. CLOZARIL [Suspect]
     Indication: SCHIZOPHRENIA
     Dosage: UNK
     Route: 048
     Dates: start: 20020307
  2. CLOZARIL [Suspect]
     Indication: MAJOR DEPRESSION
  3. METHADONE [Suspect]
     Dosage: 14 ML, UNK
  4. VENLAFAXINE [Concomitant]
     Indication: MAJOR DEPRESSION
     Dosage: 160 MG, UNK
     Route: 048
  5. MIRTAZAPINE [Concomitant]
     Indication: MAJOR DEPRESSION
     Dosage: 45 MG, UNK

REACTIONS (3)
  - ACCIDENTAL OVERDOSE [None]
  - COMPLETED SUICIDE [None]
  - DEPRESSED MOOD [None]
